FAERS Safety Report 13672043 (Version 1)
Quarter: 2017Q2

REPORT INFORMATION
  Report Type: Spontaneous
  Country: US (occurrence: US)
  Receive Date: 20170620
  Receipt Date: 20170620
  Transmission Date: 20170830
  Serious: Yes (Hospitalization, Other)
  Sender: FDA-Public Use
  Company Number: US-GILEAD-2017-0277575

PATIENT
  Age: 65 Year
  Sex: Male

DRUGS (1)
  1. ZYDELIG [Suspect]
     Active Substance: IDELALISIB
     Indication: CHRONIC LYMPHOCYTIC LEUKAEMIA
     Dosage: 150 MG, BID
     Route: 065

REACTIONS (9)
  - Skin reaction [Unknown]
  - Dermatitis exfoliative [Unknown]
  - Off label use [Recovered/Resolved]
  - Staphylococcal infection [Unknown]
  - Transaminases increased [Unknown]
  - Leukocytosis [Unknown]
  - Rash erythematous [Unknown]
  - Anaemia [Unknown]
  - Septic shock [Unknown]
